FAERS Safety Report 24215069 (Version 1)
Quarter: 2024Q3

REPORT INFORMATION
  Report Type: Spontaneous
  Country: MX (occurrence: MX)
  Receive Date: 20240816
  Receipt Date: 20240816
  Transmission Date: 20241017
  Serious: Yes (Hospitalization, Other)
  Sender: JOHNSON AND JOHNSON
  Company Number: MX-BAYER-2024A116952

PATIENT
  Age: 68 Year
  Sex: Male
  Weight: 54 kg

DRUGS (2)
  1. XARELTO [Suspect]
     Active Substance: RIVAROXABAN
     Indication: Product used for unknown indication
     Dosage: UNK
     Route: 048
  2. XARELTO [Suspect]
     Active Substance: RIVAROXABAN
     Dosage: 2.5 MG, BID?THERAPY START DATE: /AUG/2024
     Route: 048

REACTIONS (2)
  - Benign prostatic hyperplasia [Unknown]
  - Haematuria [Unknown]

NARRATIVE: CASE EVENT DATE: 20240501
